FAERS Safety Report 4647992-3 (Version None)
Quarter: 2005Q2

REPORT INFORMATION
  Report Type: 
  Country: None (occurrence: None)
  Receive Date: 20050331
  Receipt Date: 20050120
  Transmission Date: 20051028
  Serious: No
  Sender: FDA-Public Use
  Company Number: 05P-163-0287411

PATIENT
  Age: 56 Year
  Sex: Male
  Weight: 88.4514 kg

DRUGS (3)
  1. HUMIRA [Suspect]
     Indication: CROHN'S DISEASE
     Dosage: 40 MG, 1 IN 2 WK, SUBCUTANEOUS, 40 MG 1 IN 1 WK SUBCUTANIOUS
     Route: 058
     Dates: start: 20041001, end: 20050101
  2. HUMIRA [Suspect]
     Indication: CROHN'S DISEASE
     Dosage: 40 MG, 1 IN 2 WK, SUBCUTANEOUS, 40 MG 1 IN 1 WK SUBCUTANIOUS
     Route: 058
     Dates: start: 20050101
  3. MESALAMINE [Concomitant]

REACTIONS (3)
  - DYSPNOEA [None]
  - INJECTION SITE ERYTHEMA [None]
  - NIGHT SWEATS [None]
